FAERS Safety Report 7625803-1 (Version None)
Quarter: 2011Q3

REPORT INFORMATION
  Report Type: 
  Country: None (occurrence: None)
  Receive Date: 20110721
  Receipt Date: 20110706
  Transmission Date: 20111222
  Serious: Yes (Other)
  Sender: FDA-Public Use
  Company Number: DE-ELI_LILLY_AND_COMPANY-DE201107003304

PATIENT
  Sex: Female
  Weight: 73.5 kg

DRUGS (8)
  1. ASPIRIN [Concomitant]
     Dosage: 100 MG, UNK
  2. AMLODIPINE [Concomitant]
     Dosage: 5 MG, UNK
  3. FUROSEMIDE [Concomitant]
     Dosage: 10 MG, UNK
  4. SIMCOR [Concomitant]
     Dosage: 20 MG, UNK
  5. TADALAFIL [Suspect]
     Indication: PULMONARY ARTERIAL HYPERTENSION
     Dosage: 20 MG, UNK
     Dates: start: 20110624, end: 20110701
  6. TRACLEER [Concomitant]
  7. BISOPROLOL [Concomitant]
     Dosage: 2.5 MG, UNK
  8. RAMIPRIL [Concomitant]
     Dosage: 2.5 MG, UNK

REACTIONS (1)
  - SYNCOPE [None]
